FAERS Safety Report 4710622-6 (Version None)
Quarter: 2005Q3

REPORT INFORMATION
  Report Type: 
  Country: None (occurrence: None)
  Receive Date: 20050711
  Receipt Date: 20050704
  Transmission Date: 20060218
  Serious: Yes (Hospitalization)
  Sender: FDA-Public Use
  Company Number: JP-BRACCO-BRO-008780

PATIENT
  Age: 60 Year
  Sex: Female

DRUGS (1)
  1. IOPAMIDOL [Suspect]
     Route: 042
     Dates: start: 20050623, end: 20050623

REACTIONS (6)
  - CHEST PAIN [None]
  - HYPERSENSITIVITY [None]
  - INTERSTITIAL LUNG DISEASE [None]
  - PRURITUS [None]
  - PYREXIA [None]
  - RASH [None]
